FAERS Safety Report 13948777 (Version 2)
Quarter: 2018Q1

REPORT INFORMATION
  Report Type: Report from Study
  Country: US (occurrence: US)
  Receive Date: 20170908
  Receipt Date: 20180108
  Transmission Date: 20180508
  Serious: Yes (Hospitalization)
  Sender: FDA-Public Use
  Company Number: US-BAYER-2017-167809

PATIENT
  Age: 90 Year
  Sex: Male
  Weight: 70.3 kg

DRUGS (11)
  1. NEXAVAR [Suspect]
     Active Substance: SORAFENIB
     Indication: HEPATOCELLULAR CARCINOMA
     Dosage: 400 MG, BID
     Route: 048
     Dates: start: 20170818, end: 20170825
  2. GLIMEPIRIDE. [Concomitant]
     Active Substance: GLIMEPIRIDE
  3. ACARBOSE. [Concomitant]
     Active Substance: ACARBOSE
  4. FUROSEMIDE. [Concomitant]
     Active Substance: FUROSEMIDE
  5. ECONAZOLE NITRATE. [Concomitant]
     Active Substance: ECONAZOLE NITRATE
  6. GLIPIZIDE. [Concomitant]
     Active Substance: GLIPIZIDE
  7. APIXABAN [Concomitant]
     Active Substance: APIXABAN
  8. MUPIROCIN. [Concomitant]
     Active Substance: MUPIROCIN
  9. ASPIRIN. [Concomitant]
     Active Substance: ASPIRIN
  10. METFORMIN [Concomitant]
     Active Substance: METFORMIN HYDROCHLORIDE
  11. TAMSULOSIN [Concomitant]
     Active Substance: TAMSULOSIN

REACTIONS (4)
  - Inappropriate antidiuretic hormone secretion [Recovering/Resolving]
  - Cardiac failure congestive [Recovering/Resolving]
  - Oropharyngeal pain [Recovering/Resolving]
  - Blood sodium decreased [Recovering/Resolving]
